FAERS Safety Report 15936731 (Version 1)
Quarter: 2019Q1

REPORT INFORMATION
  Report Type: Spontaneous
  Country: GB (occurrence: GB)
  Receive Date: 20190208
  Receipt Date: 20190208
  Transmission Date: 20190417
  Serious: Yes (Other)
  Sender: FDA-Public Use
  Company Number: GB-TEVA-2019-GB-1006491

PATIENT
  Age: 21 Year
  Sex: Female
  Weight: 56 kg

DRUGS (2)
  1. VITAMIN D [Concomitant]
     Active Substance: CHOLECALCIFEROL
     Dosage: 50,000 IU/G
  2. LIOTHYRONINE SODIUM. [Suspect]
     Active Substance: LIOTHYRONINE SODIUM
     Indication: THYROIDECTOMY
     Dosage: 20 MCG/ML 1 ML TWICE A DAY (1 ML=28 DROPS)
     Route: 048
     Dates: start: 20181108, end: 20190101

REACTIONS (23)
  - Depressed mood [Recovered/Resolved]
  - Arthralgia [Recovered/Resolved with Sequelae]
  - Abnormal loss of weight [Not Recovered/Not Resolved]
  - Vomiting [Unknown]
  - Nervousness [Recovered/Resolved]
  - Exercise tolerance decreased [Recovered/Resolved with Sequelae]
  - Myalgia [Unknown]
  - Muscle fatigue [Recovered/Resolved with Sequelae]
  - Immune system disorder [Recovered/Resolved]
  - Amnesia [Recovered/Resolved with Sequelae]
  - Nausea [Recovering/Resolving]
  - Constipation [Recovered/Resolved]
  - Dyspepsia [Recovered/Resolved]
  - Anxiety [Recovered/Resolved]
  - Dry skin [Recovered/Resolved with Sequelae]
  - Dizziness [Recovered/Resolved with Sequelae]
  - Asthenia [Recovered/Resolved with Sequelae]
  - Fatigue [Recovered/Resolved with Sequelae]
  - Irritability [Recovered/Resolved with Sequelae]
  - Memory impairment [Recovering/Resolving]
  - Oedema [Recovered/Resolved with Sequelae]
  - Regurgitation [Unknown]
  - Diarrhoea [Recovered/Resolved]

NARRATIVE: CASE EVENT DATE: 20181110
